FAERS Safety Report 18898668 (Version 1)
Quarter: 2021Q1

REPORT INFORMATION
  Report Type: Report from Study
  Country: US (occurrence: US)
  Receive Date: 20210216
  Receipt Date: 20210216
  Transmission Date: 20210420
  Serious: Yes (Other)
  Sender: FDA-Public Use
  Company Number: NVSC2021US026505

PATIENT
  Age: 69 Year
  Sex: Female
  Weight: 66.2 kg

DRUGS (18)
  1. FIBERCON [Concomitant]
     Active Substance: CALCIUM POLYCARBOPHIL
     Indication: PRODUCT USED FOR UNKNOWN INDICATION
     Dosage: UNK(TAKE 1 TABLET BY MOUTH 2 TIMES DAILY MEALS)
     Route: 065
  2. ZORTRESS [Suspect]
     Active Substance: EVEROLIMUS
     Indication: IMMUNOSUPPRESSION
     Dosage: 0.25 MG, Q12H (LEVEL DEPENDENT GAOL 4?8 TROUGH LEVEL)
     Route: 048
     Dates: start: 20200521, end: 20200929
  3. ZOVIRAX [Concomitant]
     Active Substance: ACYCLOVIR
     Indication: PRODUCT USED FOR UNKNOWN INDICATION
     Dosage: UNK(TAKE 2 CAPSULES BY MOUTH 2 TIMES DAILY)
     Route: 065
  4. ASPIRIN. [Concomitant]
     Active Substance: ASPIRIN
     Indication: PRODUCT USED FOR UNKNOWN INDICATION
     Dosage: UNK(TAKE 1 TABLET BY MOUTH EVERY MORNING)
     Route: 065
  5. LIPITOR [Concomitant]
     Active Substance: ATORVASTATIN CALCIUM
     Indication: BLOOD CHOLESTEROL DECREASED
     Dosage: UNK(TAKE 1 TAB BY MOUTH NIGHTLY)
     Route: 065
  6. CARDIZEM [Concomitant]
     Active Substance: DILTIAZEM HYDROCHLORIDE
     Indication: PRODUCT USED FOR UNKNOWN INDICATION
     Dosage: UNK(TAKE 1 TAB BY MOUTH DAILY)
     Route: 065
  7. MAG?OX [Concomitant]
     Active Substance: MAGNESIUM OXIDE
     Indication: PRODUCT USED FOR UNKNOWN INDICATION
     Dosage: UNK(TAKE 1 TABLET BY MOUTH 2 TIMES DAILY WITH MEALS)
     Route: 065
  8. CELLCEPT [Concomitant]
     Active Substance: MYCOPHENOLATE MOFETIL\MYCOPHENOLATE MOFETIL HYDROCHLORIDE
     Indication: TRANSPLANT REJECTION
     Dosage: UNK(TAKE 4 CAPSULES BY MOUTH EVERY 12 HOURS)
     Route: 065
  9. ZORTRESS [Suspect]
     Active Substance: EVEROLIMUS
     Indication: LUNG TRANSPLANT
  10. LUTEIN [Concomitant]
     Active Substance: LUTEIN
     Indication: PRODUCT USED FOR UNKNOWN INDICATION
     Dosage: 20 MG(TAKE BY MOUTH DAILY WITH LUNCH)
     Route: 065
  11. PRILOSEC [Concomitant]
     Active Substance: OMEPRAZOLE MAGNESIUM
     Indication: PRODUCT USED FOR UNKNOWN INDICATION
     Dosage: UNK(TAKE 1 CAPSULE BY MOUTH 2 TIMES DAILY)
     Route: 065
  12. PROGRAF [Concomitant]
     Active Substance: TACROLIMUS
     Indication: PRODUCT USED FOR UNKNOWN INDICATION
     Dosage: (TAKE 3 CAPSULES BY MOUTH EVERY MORNING AND 2 CAP AT NIGHT)UNK
     Route: 065
  13. TYLENOL [Concomitant]
     Active Substance: ACETAMINOPHEN
     Indication: PAIN
     Dosage: UNK(TAKE 2 CAPSULES BY MOUTH EVERY 4 TO 6 HOURS AS NEEDED FOR PAIN MAX DOSE IN 24 HRS IS 4,000MG)
     Route: 065
  14. BACTRIM [Concomitant]
     Active Substance: SULFAMETHOXAZOLE\TRIMETHOPRIM
     Indication: PRODUCT USED FOR UNKNOWN INDICATION
     Dosage: UNK(TAKE 1 TAB BY MOUTH DAILY)
     Route: 065
  15. DELTASONE [Concomitant]
     Active Substance: PREDNISONE
     Indication: PRODUCT USED FOR UNKNOWN INDICATION
     Dosage: UNK(TAKE 1 TABLET BY MOUTH DAILY)
     Route: 065
  16. ZITHROMAX [Concomitant]
     Active Substance: AZITHROMYCIN DIHYDRATE
     Indication: TRANSPLANT REJECTION
     Dosage: UNK(TAKE TABLET BY MOUTH EVERY MONDAY WED,FRI)
     Route: 065
  17. DESYREL [Concomitant]
     Active Substance: TRAZODONE HYDROCHLORIDE
     Indication: PRODUCT USED FOR UNKNOWN INDICATION
     Dosage: (TAKE 0.5 TAB ,HALF TAB 25MG,BY MOUTH NIGHTLY)UNK
     Route: 065
  18. VITAMIN D3 [Concomitant]
     Active Substance: CHOLECALCIFEROL
     Indication: PRODUCT USED FOR UNKNOWN INDICATION
     Dosage: UNK(TAKE 2 TABLETS BY MOUTH DAILY WITH LUNCH)
     Route: 065

REACTIONS (5)
  - Tremor [Recovered/Resolved]
  - Hypoaesthesia [Recovered/Resolved]
  - Neutropenia [Not Recovered/Not Resolved]
  - Oedema peripheral [Recovered/Resolved]
  - Leukopenia [Not Recovered/Not Resolved]

NARRATIVE: CASE EVENT DATE: 20200524
